FAERS Safety Report 13695205 (Version 1)
Quarter: 2017Q2

REPORT INFORMATION
  Report Type: Spontaneous
  Country: None (occurrence: US)
  Receive Date: 20170627
  Receipt Date: 20170627
  Transmission Date: 20170830
  Serious: No
  Sender: FDA-Public Use
  Company Number: US-MERZ NORTH AMERICA, INC.-17MRZ-00203

PATIENT
  Age: 73 Year
  Sex: Female

DRUGS (1)
  1. ASCLERA [Suspect]
     Active Substance: POLIDOCANOL
     Indication: VEIN DISORDER
     Dates: start: 20161221, end: 20161221

REACTIONS (3)
  - Drug ineffective [None]
  - Skin reaction [None]
  - Pruritus [None]

NARRATIVE: CASE EVENT DATE: 20161221
